FAERS Safety Report 6109299-7 (Version None)
Quarter: 2009Q1

REPORT INFORMATION
  Report Type: 
  Country: None (occurrence: None)
  Receive Date: 20090306
  Receipt Date: 20090219
  Transmission Date: 20090719
  Serious: Yes (Hospitalization)
  Sender: FDA-Public Use
  Company Number: 200551

PATIENT
  Age: 9 Year
  Sex: Male
  Weight: 27.55 kg

DRUGS (7)
  1. METHOTREXATE [Suspect]
     Dosage: 12.5 MG, SUBCUTANEOUS
     Route: 058
     Dates: start: 20051123
  2. CETIRIZINE [Concomitant]
  3. FLUTICASONE PROPIONATE [Concomitant]
  4. IBUPROFEN TABLETS [Concomitant]
  5. METHYLPREDNISOLONE 4MG TAB [Concomitant]
  6. PIROXICAM [Concomitant]
  7. PREDNISOLONE TAB [Concomitant]

REACTIONS (3)
  - CONDITION AGGRAVATED [None]
  - INADEQUATE ANALGESIA [None]
  - JUVENILE ARTHRITIS [None]
